FAERS Safety Report 12907855 (Version 7)
Quarter: 2019Q1

REPORT INFORMATION
  Report Type: Spontaneous
  Country: US (occurrence: US)
  Receive Date: 20161103
  Receipt Date: 20190320
  Transmission Date: 20190417
  Serious: Yes (Hospitalization, Other)
  Sender: FDA-Public Use
  Company Number: US-PFIZER INC-2016508728

PATIENT
  Age: 65 Year
  Sex: Female
  Weight: 58.97 kg

DRUGS (7)
  1. LYRICA [Suspect]
     Active Substance: PREGABALIN
     Indication: NERVE INJURY
     Dosage: 100 MG, 2X/DAY
     Route: 048
     Dates: start: 2005
  2. MOBIC [Concomitant]
     Active Substance: MELOXICAM
     Indication: PAIN
     Dosage: 15 MG, ONCE DAILY
     Route: 048
     Dates: start: 2011
  3. LUNESTA [Concomitant]
     Active Substance: ESZOPICLONE
     Dosage: UNK
     Dates: start: 2011
  4. LIDODERM [Concomitant]
     Active Substance: LIDOCAINE
     Indication: NERVE INJURY
     Dosage: 1 DF, ONCE DAILY (12 HOURS ON, 12 HOURS OFF)
     Dates: start: 2005
  5. HYDROCODONE [Concomitant]
     Active Substance: HYDROCODONE
     Dosage: UNK
     Dates: start: 2005
  6. LYRICA [Suspect]
     Active Substance: PREGABALIN
     Indication: BACK PAIN
  7. LYRICA [Suspect]
     Active Substance: PREGABALIN
     Indication: SPINAL OPERATION

REACTIONS (12)
  - Back pain [Unknown]
  - Memory impairment [Unknown]
  - Cognitive disorder [Unknown]
  - Procedural complication [Unknown]
  - Bedridden [Unknown]
  - Dyspnoea [Not Recovered/Not Resolved]
  - Intentional product misuse [Unknown]
  - Lung disorder [Unknown]
  - Stress [Not Recovered/Not Resolved]
  - Back injury [Unknown]
  - Intentional product use issue [Unknown]
  - Neuralgia [Unknown]

NARRATIVE: CASE EVENT DATE: 20161114
